FAERS Safety Report 23645853 (Version 1)
Quarter: 2024Q1

REPORT INFORMATION
  Report Type: Spontaneous
  Country: BG (occurrence: BG)
  Receive Date: 20240319
  Receipt Date: 20240319
  Transmission Date: 20240410
  Serious: Yes (Death)
  Sender: FDA-Public Use
  Company Number: BG-BoehringerIngelheim-2024-BI-015613

PATIENT
  Age: 90 Year
  Sex: Male

DRUGS (1)
  1. PRAXBIND [Suspect]
     Active Substance: IDARUCIZUMAB
     Indication: Atrial fibrillation
     Dates: end: 20231207

REACTIONS (2)
  - Cardiac failure acute [Fatal]
  - Post procedural complication [Fatal]
